FAERS Safety Report 24272635 (Version 1)
Quarter: 2024Q3

REPORT INFORMATION
  Report Type: Spontaneous
  Country: US (occurrence: US)
  Receive Date: 20240902
  Receipt Date: 20240902
  Transmission Date: 20241017
  Serious: Yes (Other)
  Sender: DR REDDYS
  Company Number: US-DRL-USA-SPO/USA/24/0012556

PATIENT
  Age: 4 Year
  Sex: Female

DRUGS (13)
  1. MERCAPTOPURINE [Suspect]
     Active Substance: MERCAPTOPURINE
     Indication: B-cell type acute leukaemia
     Dosage: MERCAPTOPURINE 3.9 MG/KG DAILY (122% OF PROTOCOL DOSING)
  2. MERCAPTOPURINE [Suspect]
     Active Substance: MERCAPTOPURINE
  3. ALLOPURINOL [Suspect]
     Active Substance: ALLOPURINOL
     Indication: Product used for unknown indication
  4. METHOTREXATE [Concomitant]
     Active Substance: METHOTREXATE
     Indication: B-cell type acute leukaemia
     Dosage: 0.6 MG/KG (71% PROTOCOL DOSING)
  5. METHOTREXATE [Concomitant]
     Active Substance: METHOTREXATE
     Dosage: INTRATHECAL METHOTREXATE 0.75 MG/KG (BEGINNING OF EACH MAINTENANCE CYCLE).
  6. CLOBETASOL [Concomitant]
     Active Substance: CLOBETASOL
     Indication: Product used for unknown indication
     Route: 061
  7. ZINC [Concomitant]
     Active Substance: ZINC
     Indication: Vitamin supplementation
  8. VITAMIN D [Concomitant]
     Active Substance: VITAMIN D NOS
     Indication: Vitamin supplementation
  9. GANCICLOVIR [Concomitant]
     Active Substance: GANCICLOVIR
     Indication: Product used for unknown indication
  10. POLYMYXIN [Concomitant]
     Active Substance: POLYMYXIN
     Indication: Product used for unknown indication
  11. NEOMYCIN [Concomitant]
     Active Substance: NEOMYCIN
     Indication: Product used for unknown indication
  12. NAPHAZOLINE [Concomitant]
     Active Substance: NAPHAZOLINE\NAPHAZOLINE HYDROCHLORIDE
     Indication: Product used for unknown indication
  13. PHENIRAMINE [Concomitant]
     Active Substance: PHENIRAMINE
     Indication: Product used for unknown indication
     Dosage: FOUR TIMES DAILY

REACTIONS (4)
  - Mucosal inflammation [Unknown]
  - Palmar-plantar erythrodysaesthesia syndrome [Unknown]
  - Hypertransaminasaemia [Unknown]
  - Toxicity to various agents [Unknown]
